FAERS Safety Report 25847483 (Version 1)
Quarter: 2025Q3

REPORT INFORMATION
  Report Type: Spontaneous
  Country: CN (occurrence: CN)
  Receive Date: 20250925
  Receipt Date: 20250925
  Transmission Date: 20251020
  Serious: Yes (Other)
  Sender: SOMERSET THERAPEUTICS, LLC
  Company Number: CN-MIT-25-75-CN-2025-SOM-LIT-00038

PATIENT
  Age: 69 Year
  Sex: Male

DRUGS (5)
  1. PEMETREXED DISODIUM [Suspect]
     Active Substance: PEMETREXED DISODIUM
     Indication: Lung adenocarcinoma
     Route: 065
     Dates: start: 202401, end: 202402
  2. PEMETREXED DISODIUM [Suspect]
     Active Substance: PEMETREXED DISODIUM
     Route: 065
     Dates: start: 202403, end: 202502
  3. BEVACIZUMAB [Suspect]
     Active Substance: BEVACIZUMAB
     Indication: Lung adenocarcinoma
     Route: 065
     Dates: start: 202401, end: 202402
  4. BEVACIZUMAB [Suspect]
     Active Substance: BEVACIZUMAB
     Route: 065
     Dates: start: 202403, end: 202502
  5. SINTILIMAB [Suspect]
     Active Substance: SINTILIMAB
     Indication: Lung adenocarcinoma
     Route: 065
     Dates: start: 202403, end: 202502

REACTIONS (5)
  - Hyperthyroidism [Recovered/Resolved]
  - Myelosuppression [Not Recovered/Not Resolved]
  - Pneumonia [Unknown]
  - Thrombocytopenia [Unknown]
  - Anaemia [Unknown]

NARRATIVE: CASE EVENT DATE: 20240101
